FAERS Safety Report 16012670 (Version 1)
Quarter: 2019Q1

REPORT INFORMATION
  Report Type: Spontaneous
  Country: CZ (occurrence: CZ)
  Receive Date: 20190227
  Receipt Date: 20190227
  Transmission Date: 20190418
  Serious: Yes (Other)
  Sender: FDA-Public Use
  Company Number: CZ-FRESENIUS KABI-FK201902134

PATIENT
  Age: 39 Year
  Sex: Female

DRUGS (2)
  1. CARBOPLATIN (MANUFACTURER UNKNOWN) [Suspect]
     Active Substance: CARBOPLATIN
     Indication: OVARIAN CANCER STAGE III
     Route: 065
  2. PACLITAXEL (MANUFACTURER UNKNOWN) [Suspect]
     Active Substance: PACLITAXEL
     Indication: OVARIAN CANCER STAGE III
     Route: 065

REACTIONS (2)
  - Neutropenia [Unknown]
  - Ileus [Unknown]
